FAERS Safety Report 12758729 (Version 1)
Quarter: 2016Q3

REPORT INFORMATION
  Report Type: Spontaneous
  Country: US (occurrence: US)
  Receive Date: 20160918
  Receipt Date: 20160918
  Transmission Date: 20161109
  Serious: Yes (Other)
  Sender: FDA-Public Use
  Company Number: None

PATIENT
  Age: 34 Year
  Sex: Female
  Weight: 90 kg

DRUGS (5)
  1. ADVIL [Concomitant]
     Active Substance: IBUPROFEN
  2. LIPO-B INJECTION [Suspect]
     Active Substance: CHOLINE CHLORIDE\CYANOCOBALAMIN\INOSITOL\METHIONINE
     Indication: WEIGHT CONTROL
     Route: 030
     Dates: start: 20160719, end: 20160719
  3. VITAMIN D3 [Concomitant]
     Active Substance: CHOLECALCIFEROL
  4. TURMERIC [Concomitant]
     Active Substance: TURMERIC
  5. FISH OIL [Concomitant]
     Active Substance: FISH OIL

REACTIONS (6)
  - Arthralgia [None]
  - Anger [None]
  - Pain in extremity [None]
  - Inflammation [None]
  - Pain [None]
  - Abasia [None]

NARRATIVE: CASE EVENT DATE: 20160720
